FAERS Safety Report 5565274-2 (Version None)
Quarter: 2007Q4

REPORT INFORMATION
  Report Type: 
  Country: None (occurrence: None)
  Receive Date: 20071218
  Receipt Date: 20071206
  Transmission Date: 20080405
  Serious: Yes (Other)
  Sender: FDA-Public Use
  Company Number: US-PFIZER INC-2007089443

PATIENT
  Sex: Female
  Weight: 77.1 kg

DRUGS (7)
  1. LYRICA [Suspect]
  2. INDERAL [Suspect]
  3. NEURONTIN [Concomitant]
  4. PERCOCET [Concomitant]
  5. CYMBALTA [Concomitant]
  6. TRAZODONE HCL [Concomitant]
  7. KLONOPIN [Concomitant]

REACTIONS (6)
  - ADVERSE DRUG REACTION [None]
  - ADVERSE EVENT [None]
  - CEREBROVASCULAR ACCIDENT [None]
  - DISORIENTATION [None]
  - DISTURBANCE IN ATTENTION [None]
  - INJURY [None]
